FAERS Safety Report 17036406 (Version 2)
Quarter: 2019Q4

REPORT INFORMATION
  Report Type: Spontaneous
  Country: FI (occurrence: FI)
  Receive Date: 20191115
  Receipt Date: 20191205
  Transmission Date: 20200122
  Serious: Yes (Other)
  Sender: FDA-Public Use
  Company Number: FI-009507513-1910FIN015275

PATIENT
  Age: 22 Year
  Sex: Female

DRUGS (7)
  1. PROTOPIC [Concomitant]
     Active Substance: TACROLIMUS
     Indication: SKIN DISORDER
     Dosage: UNK, PRN
  2. FUCICORT [Concomitant]
     Active Substance: BETAMETHASONE VALERATE\FUSIDIC ACID
     Indication: SKIN DISORDER
     Dosage: UNK, PRN
  3. PANADOL [Concomitant]
     Active Substance: ACETAMINOPHEN
     Indication: MIGRAINE
     Dosage: UNK, PRN
  4. NEXPLANON [Suspect]
     Active Substance: ETONOGESTREL
     Dosage: 1 DOSAGE FORM
     Route: 059
     Dates: start: 20191111
  5. NEXPLANON [Suspect]
     Active Substance: ETONOGESTREL
     Indication: CONTRACEPTION
     Dosage: 1 DOSAGE FORM
     Route: 059
     Dates: start: 201608, end: 20191111
  6. BURANA [Concomitant]
     Active Substance: IBUPROFEN
     Indication: MIGRAINE
     Dosage: UNK, PRN
  7. MIRANAX [Concomitant]
     Indication: MIGRAINE
     Dosage: UNK, PRN

REACTIONS (5)
  - Menorrhagia [Not Recovered/Not Resolved]
  - Oligomenorrhoea [Recovered/Resolved]
  - Circumstance or information capable of leading to medication error [Unknown]
  - Incorrect product administration duration [Unknown]
  - Wolff-Parkinson-White syndrome [Unknown]

NARRATIVE: CASE EVENT DATE: 2019
